FAERS Safety Report 20638232 (Version 1)
Quarter: 2022Q1

REPORT INFORMATION
  Report Type: Spontaneous
  Country: US (occurrence: US)
  Receive Date: 20220325
  Receipt Date: 20220325
  Transmission Date: 20220423
  Serious: Yes (Other)
  Sender: FDA-Public Use
  Company Number: US-PFIZER INC-202200418961

PATIENT
  Age: 69 Year
  Sex: Female

DRUGS (1)
  1. IBRANCE [Suspect]
     Active Substance: PALBOCICLIB
     Dosage: 125 MG
     Dates: start: 20220210

REACTIONS (8)
  - Pleural effusion [Unknown]
  - Product dose omission in error [Unknown]
  - Lip discolouration [Unknown]
  - Tongue discolouration [Unknown]
  - Dry mouth [Unknown]
  - Lip dry [Unknown]
  - Tongue dry [Unknown]
  - Oral mucosal discolouration [Unknown]

NARRATIVE: CASE EVENT DATE: 20220101
